FAERS Safety Report 8964427 (Version 1)
Quarter: 2012Q4

REPORT INFORMATION
  Report Type: 
  Country: GB (occurrence: GB)
  Receive Date: 20121214
  Receipt Date: 20121214
  Transmission Date: 20130627
  Serious: Yes (Other)
  Sender: FDA-Public Use
  Company Number: GB-PFIZER INC-GB8960216APR2002

PATIENT
  Age: 3 None
  Sex: Female

DRUGS (2)
  1. IBUPROFEN [Suspect]
     Dosage: 200 mg, 3x/day
     Route: 048
  2. EPILIM [Interacting]
     Dosage: 400 mg, 2x/day
     Route: 048
     Dates: start: 200203

REACTIONS (2)
  - Drug interaction [Unknown]
  - Haematemesis [Unknown]
